FAERS Safety Report 7911128-3 (Version None)
Quarter: 2011Q4

REPORT INFORMATION
  Report Type: 
  Country: None (occurrence: None)
  Receive Date: 20111109
  Receipt Date: 20111031
  Transmission Date: 20120403
  Serious: Yes (Life-Threatening, Hospitalization, Other)
  Sender: FDA-Public Use
  Company Number: AUR-APL-2011-05654

PATIENT
  Age: 74 Year
  Sex: Male

DRUGS (1)
  1. SIMVASTATIN [Suspect]
     Indication: HYPERCHOLESTEROLAEMIA
     Dosage: (80 MG), ORAL
     Route: 048
     Dates: start: 20050101, end: 20110904

REACTIONS (4)
  - RENAL FAILURE [None]
  - HAEMODIALYSIS [None]
  - TOXICITY TO VARIOUS AGENTS [None]
  - RHABDOMYOLYSIS [None]
